FAERS Safety Report 4351584-3 (Version None)
Quarter: 2004Q2

REPORT INFORMATION
  Report Type: 
  Country: None (occurrence: None)
  Receive Date: 20040429
  Receipt Date: 20040402
  Transmission Date: 20050107
  Serious: No
  Sender: FDA-Public Use
  Company Number: 2004-114538-NL

PATIENT
  Age: 33 Year
  Sex: Female

DRUGS (2)
  1. NUVARING [Suspect]
     Indication: CONTRACEPTION
     Dosage: DF DAILY
     Dates: start: 20031101
  2. IRON SUPPLEMENT [Concomitant]

REACTIONS (1)
  - OLIGOMENORRHOEA [None]
